FAERS Safety Report 5447216-3 (Version None)
Quarter: 2007Q3

REPORT INFORMATION
  Report Type: 
  Country: None (occurrence: None)
  Receive Date: 20070910
  Receipt Date: 20070828
  Transmission Date: 20080115
  Serious: Yes (Hospitalization)
  Sender: FDA-Public Use
  Company Number: GB-JNJFOC-20070806398

PATIENT
  Age: 82 Year
  Sex: Female

DRUGS (5)
  1. PARACETAMOL [Suspect]
  2. PARACETAMOL [Suspect]
     Indication: ANALGESIA
  3. LEVOFLOXACIN [Suspect]
     Indication: DEVICE RELATED INFECTION
  4. FLUCLOXACILLIN [Suspect]
     Indication: DEVICE RELATED INFECTION
     Route: 042
  5. RIFAMPICIN [Suspect]
     Indication: DEVICE RELATED INFECTION

REACTIONS (7)
  - AMINOACIDURIA [None]
  - HYPOKALAEMIA [None]
  - HYPOMAGNESAEMIA [None]
  - HYPOPHOSPHATAEMIA [None]
  - KETONURIA [None]
  - METABOLIC ACIDOSIS [None]
  - METABOLIC ENCEPHALOPATHY [None]
